FAERS Safety Report 11706936 (Version 2)
Quarter: 2015Q4

REPORT INFORMATION
  Report Type: Spontaneous
  Country: US (occurrence: US)
  Receive Date: 20151106
  Receipt Date: 20151112
  Transmission Date: 20160304
  Serious: No
  Sender: FDA-Public Use
  Company Number: US-PFIZER INC-2015378277

PATIENT
  Age: 78 Year
  Sex: Male
  Weight: 73 kg

DRUGS (10)
  1. PREDNISONE. [Suspect]
     Active Substance: PREDNISONE
     Indication: RASH MACULAR
  2. MEDROL [Suspect]
     Active Substance: METHYLPREDNISOLONE
     Indication: RASH
  3. MULTIVITAMINS [Concomitant]
     Active Substance: VITAMINS
     Dosage: 1 DF, DAILY
  4. METHYLPREDNISOLONE. [Suspect]
     Active Substance: METHYLPREDNISOLONE
     Indication: RASH MACULAR
  5. METHYLPREDNISOLONE. [Suspect]
     Active Substance: METHYLPREDNISOLONE
     Indication: PRURITUS
     Dosage: 4MG TABLETS TAPERED DOWN OVER 5 DAYS
     Route: 048
     Dates: start: 20151015
  6. PREDNISONE. [Suspect]
     Active Substance: PREDNISONE
     Indication: PRURITUS
     Dosage: TOOK 5 TABLETS THE FIRST TWO DAYS AND THEN TOOK A TABLET AWAY EACH DAY AFTER THAT
     Route: 048
     Dates: start: 201509
  7. PREDNISONE. [Suspect]
     Active Substance: PREDNISONE
     Indication: RASH
  8. MEDROL [Suspect]
     Active Substance: METHYLPREDNISOLONE
     Indication: PRURITUS
     Dosage: 4MG TABLETS TAPERED DOWN OVER 5 DAYS
     Route: 048
     Dates: start: 20151015
  9. MEDROL [Suspect]
     Active Substance: METHYLPREDNISOLONE
     Indication: RASH MACULAR
  10. METHYLPREDNISOLONE. [Suspect]
     Active Substance: METHYLPREDNISOLONE
     Indication: RASH

REACTIONS (1)
  - Drug ineffective [Unknown]
